FAERS Safety Report 9086597 (Version 1)
Quarter: 2013Q1

REPORT INFORMATION
  Report Type: Spontaneous
  Country: US (occurrence: US)
  Receive Date: 20130131
  Receipt Date: 20130131
  Transmission Date: 20140127
  Serious: Yes (Other)
  Sender: FDA-Public Use
  Company Number: US-PFIZER INC-2013039472

PATIENT
  Age: 56 Year
  Sex: Female
  Weight: 54.42 kg

DRUGS (3)
  1. LYRICA [Suspect]
     Indication: PAIN
     Dosage: UNK, 3X/DAY
  2. CYMBALTA [Interacting]
     Indication: PAIN
     Dosage: UNK, 3X/DAY
     Dates: start: 2012
  3. RISPERIDONE [Suspect]
     Indication: PSYCHOTIC DISORDER
     Dosage: 1 MG, 2X/DAY
     Dates: start: 201212

REACTIONS (5)
  - Drug interaction [Unknown]
  - Psychotic disorder [Unknown]
  - Hypertension [Unknown]
  - Blood cholesterol increased [Unknown]
  - Blood triglycerides increased [Unknown]
